FAERS Safety Report 17962120 (Version 2)
Quarter: 2020Q4

REPORT INFORMATION
  Report Type: Spontaneous
  Country: US (occurrence: US)
  Receive Date: 20200630
  Receipt Date: 20201218
  Transmission Date: 20210113
  Serious: Yes (Other)
  Sender: FDA-Public Use
  Company Number: US-PFIZER INC-2020023584

PATIENT
  Age: 76 Year
  Sex: Female
  Weight: 91 kg

DRUGS (3)
  1. LYRICA [Suspect]
     Active Substance: PREGABALIN
     Indication: FIBROMYALGIA
  2. LYRICA [Suspect]
     Active Substance: PREGABALIN
     Indication: NEUROPATHY PERIPHERAL
     Dosage: 75 MG, UNK
     Dates: start: 20060806
  3. LYRICA [Suspect]
     Active Substance: PREGABALIN
     Indication: COLLAGEN-VASCULAR DISEASE
     Dosage: 300 MG, 2X/DAY (TAKE 2 CAPSULES (300 MG) BY ORAL ROUTE 2 TIMES PER DAY)
     Route: 048

REACTIONS (4)
  - Dry mouth [Unknown]
  - Memory impairment [Unknown]
  - Product dose omission issue [Unknown]
  - Neoplasm malignant [Unknown]
